FAERS Safety Report 25275947 (Version 2)
Quarter: 2025Q2

REPORT INFORMATION
  Report Type: Spontaneous
  Country: US (occurrence: GB)
  Receive Date: 20250507
  Receipt Date: 20250507
  Transmission Date: 20250717
  Serious: No
  Sender: DEXCEL LTD.
  Company Number: US-DEXPHARM-2024-6240

PATIENT
  Age: 85 Year
  Sex: Female

DRUGS (1)
  1. ISOSORBIDE MONONITRATE [Suspect]
     Active Substance: ISOSORBIDE MONONITRATE

REACTIONS (2)
  - Blood pressure systolic increased [Unknown]
  - Malaise [Unknown]
